FAERS Safety Report 8122482-4 (Version None)
Quarter: 2012Q1

REPORT INFORMATION
  Report Type: 
  Country: None (occurrence: None)
  Receive Date: 20120208
  Receipt Date: 20111024
  Transmission Date: 20120608
  Serious: No
  Sender: FDA-Public Use
  Company Number: US-ASTRAZENECA-2011SE62995

PATIENT
  Age: 57 Year
  Sex: Female

DRUGS (2)
  1. ACCOLATE [Suspect]
     Dosage: ONCE PER DAY
     Route: 048
  2. ACCOLATE [Suspect]
     Dosage: TWICE DAILY
     Route: 048

REACTIONS (3)
  - ASTHMA [None]
  - INCORRECT DOSE ADMINISTERED [None]
  - MALAISE [None]
